FAERS Safety Report 16101184 (Version 1)
Quarter: 2019Q1

REPORT INFORMATION
  Report Type: Spontaneous
  Country: GB (occurrence: GB)
  Receive Date: 20190321
  Receipt Date: 20190321
  Transmission Date: 20190418
  Serious: Yes (Hospitalization)
  Sender: FDA-Public Use
  Company Number: GB-JNJFOC-20190316159

PATIENT
  Age: 60 Year
  Sex: Female
  Weight: 63 kg

DRUGS (10)
  1. ACICLOVIR [Concomitant]
     Active Substance: ACYCLOVIR
     Route: 065
  2. FOSTAIR [Concomitant]
     Active Substance: BECLOMETHASONE\FORMOTEROL
     Route: 065
  3. SERTRALINE [Concomitant]
     Active Substance: SERTRALINE HYDROCHLORIDE
     Route: 065
  4. GABAPENTIN. [Concomitant]
     Active Substance: GABAPENTIN
     Route: 065
  5. DARZALEX [Suspect]
     Active Substance: DARATUMUMAB
     Indication: PLASMA CELL MYELOMA
     Route: 042
     Dates: start: 20190206, end: 20190206
  6. OMEPRAZOLE. [Concomitant]
     Active Substance: OMEPRAZOLE
     Route: 065
  7. SALBUTAMOL TEVA [Concomitant]
     Active Substance: ALBUTEROL
     Indication: PLASMA CELL MYELOMA
     Route: 042
     Dates: start: 20190206, end: 20190206
  8. TAPENTADOL [Concomitant]
     Active Substance: TAPENTADOL
     Route: 065
  9. ADCAL D3 [Concomitant]
     Active Substance: CALCIUM CARBONATE\CHOLECALCIFEROL
     Route: 065
  10. LIDOCAINE. [Concomitant]
     Active Substance: LIDOCAINE
     Route: 065

REACTIONS (11)
  - Dyspnoea [Recovering/Resolving]
  - Platelet count decreased [Unknown]
  - Infusion related reaction [Unknown]
  - Rash [Unknown]
  - Tachypnoea [Unknown]
  - Hypotension [Unknown]
  - Tremor [Unknown]
  - Pyrexia [Unknown]
  - Urine output increased [Recovered/Resolved]
  - Tachycardia [Unknown]
  - Chest discomfort [Recovering/Resolving]

NARRATIVE: CASE EVENT DATE: 20190206
